FAERS Safety Report 5106997-9 (Version None)
Quarter: 2006Q3

REPORT INFORMATION
  Report Type: 
  Country: None (occurrence: None)
  Receive Date: 20060913
  Receipt Date: 20060906
  Transmission Date: 20061208
  Serious: Yes (Death, Other)
  Sender: FDA-Public Use
  Company Number: 083-20785-06090186

PATIENT
  Age: 77 Year
  Sex: Male

DRUGS (4)
  1. THALOMID [Suspect]
     Indication: MULTIPLE MYELOMA
     Dosage: 1 IN 1 D, ORAL
     Route: 048
     Dates: start: 20021115
  2. DEXAMETHASONE TAB [Suspect]
     Indication: MULTIPLE MYELOMA
     Dosage: 40 MG, DAILY FOUR DAYS EACH MONTH, UNKNOWN
     Dates: start: 20021115
  3. PAMIDRONATE DISODIUM [Concomitant]
  4. ZOLENDRONATE (ZOLEDRONIC ACID) [Concomitant]

REACTIONS (6)
  - BENCE JONES PROTEINURIA [None]
  - DEMENTIA [None]
  - DISEASE PROGRESSION [None]
  - GENERAL PHYSICAL HEALTH DETERIORATION [None]
  - NERVOUS SYSTEM DISORDER [None]
  - RENAL FAILURE [None]
